FAERS Safety Report 15218532 (Version 1)
Quarter: 2018Q3

REPORT INFORMATION
  Report Type: Spontaneous
  Country: MX (occurrence: MX)
  Receive Date: 20180730
  Receipt Date: 20180730
  Transmission Date: 20181010
  Serious: Yes (Other)
  Sender: FDA-Public Use
  Company Number: MX-009507513-1807MEX011684

PATIENT
  Age: 69 Year
  Sex: Male

DRUGS (2)
  1. KEYTRUDA [Suspect]
     Active Substance: PEMBROLIZUMAB
     Indication: BLADDER CANCER
     Dosage: 200 MG, Q3W/100MG/4ML, 10 ML VIAL
     Dates: start: 201709, end: 20180509
  2. KEYTRUDA [Suspect]
     Active Substance: PEMBROLIZUMAB
     Dosage: 200 MG, Q3W/100MG/4ML, 10 ML VIAL
     Route: 042
     Dates: start: 2018

REACTIONS (4)
  - Facial paralysis [Recovered/Resolved]
  - Intra-abdominal fluid collection [Unknown]
  - Abdominal adhesions [Unknown]
  - Asthenia [Unknown]

NARRATIVE: CASE EVENT DATE: 201801
